FAERS Safety Report 17579964 (Version 1)
Quarter: 2020Q1

REPORT INFORMATION
  Report Type: Spontaneous
  Country: JP (occurrence: JP)
  Receive Date: 20200325
  Receipt Date: 20200325
  Transmission Date: 20200409
  Serious: Yes (Death, Hospitalization)
  Sender: FDA-Public Use
  Company Number: JP-JNJFOC-20200329174

PATIENT
  Age: 73 Year
  Sex: Male

DRUGS (2)
  1. RIVAROXABAN [Suspect]
     Active Substance: RIVAROXABAN
     Indication: ATRIAL FIBRILLATION
     Dosage: 10 ML, QD
     Route: 048
     Dates: start: 20101001
  2. BAYASPIRIN [Suspect]
     Active Substance: ASPIRIN
     Indication: LACUNAR INFARCTION
     Route: 048

REACTIONS (2)
  - Embolic stroke [Unknown]
  - Pneumonia aspiration [Fatal]
